FAERS Safety Report 7523541-7 (Version None)
Quarter: 2011Q2

REPORT INFORMATION
  Report Type: 
  Country: None (occurrence: None)
  Receive Date: 20110601
  Receipt Date: 20110601
  Transmission Date: 20111010
  Serious: Yes (Hospitalization)
  Sender: FDA-Public Use
  Company Number: None

PATIENT
  Age: 52 Year
  Sex: Male
  Weight: 68.0396 kg

DRUGS (5)
  1. LEXIVA [Suspect]
     Indication: HIV INFECTION
     Dosage: 1400MG QD PO
     Route: 048
     Dates: start: 20110329, end: 20110501
  2. NORVIR [Concomitant]
  3. TRAZODONE HCL [Concomitant]
  4. TRUVADA [Concomitant]
  5. QUETIAPINE [Suspect]
     Indication: SCHIZOPHRENIA

REACTIONS (1)
  - ELECTROCARDIOGRAM QT PROLONGED [None]
